FAERS Safety Report 7510424-1 (Version None)
Quarter: 2011Q2

REPORT INFORMATION
  Report Type: 
  Country: None (occurrence: None)
  Receive Date: 20110527
  Receipt Date: 20110516
  Transmission Date: 20111010
  Serious: Yes (Other)
  Sender: FDA-Public Use
  Company Number: ES-WATSON-2011-06951

PATIENT
  Age: 33 Year
  Sex: Female

DRUGS (2)
  1. ATOSIBAN [Suspect]
     Indication: MATERNAL THERAPY TO ENHANCE FOETAL LUNG MATURITY
  2. BETAMETHASONE [Suspect]
     Indication: MATERNAL THERAPY TO ENHANCE FOETAL LUNG MATURITY
     Dosage: 12 MG, Q12H, X2
     Route: 030

REACTIONS (5)
  - CYANOSIS [None]
  - NON-CARDIOGENIC PULMONARY OEDEMA [None]
  - CAESAREAN SECTION [None]
  - NASAL CONGESTION [None]
  - DRUG EXPOSURE DURING PREGNANCY [None]
